FAERS Safety Report 8473496-6 (Version None)
Quarter: 2012Q2

REPORT INFORMATION
  Report Type: 
  Country: None (occurrence: None)
  Receive Date: 20120625
  Receipt Date: 20120625
  Transmission Date: 20120825
  Serious: Yes (Other)
  Sender: FDA-Public Use
  Company Number: None

PATIENT
  Age: 51 Year
  Sex: Female
  Weight: 67.1324 kg

DRUGS (1)
  1. OMEPRAZOLE [Suspect]
     Indication: GASTRITIS
     Dosage: 1 DAILY PO
     Route: 048
     Dates: start: 20120603, end: 20120604

REACTIONS (7)
  - PAIN [None]
  - DYSPHONIA [None]
  - NAUSEA [None]
  - CHEST DISCOMFORT [None]
  - MALAISE [None]
  - FATIGUE [None]
  - ABDOMINAL PAIN UPPER [None]
